FAERS Safety Report 21018755 (Version 2)
Quarter: 2023Q4

REPORT INFORMATION
  Report Type: Spontaneous
  Country: US (occurrence: US)
  Receive Date: 20220628
  Receipt Date: 20231012
  Transmission Date: 20240109
  Serious: Yes (Hospitalization, Other)
  Sender: FDA-Public Use
  Company Number: US-INCYTE CORPORATION-2022IN006243

PATIENT

DRUGS (3)
  1. JAKAFI [Suspect]
     Active Substance: RUXOLITINIB
     Indication: Stem cell transplant
     Dosage: 5 MILLIGRAM, BID
     Route: 048
     Dates: start: 20220223
  2. JAKAFI [Suspect]
     Active Substance: RUXOLITINIB
     Indication: Bone marrow transplant
     Dosage: 5 MILLIGRAM, BID
     Route: 048
     Dates: start: 202202
  3. JAKAFI [Suspect]
     Active Substance: RUXOLITINIB
     Dosage: DOUBLED HER JAKAFI DOSE
     Route: 065

REACTIONS (6)
  - Pulmonary embolism [Unknown]
  - Pulmonary oedema [Unknown]
  - Thrombosis [Unknown]
  - Pericardial effusion [Unknown]
  - Graft versus host disease [Unknown]
  - Off label use [Unknown]

NARRATIVE: CASE EVENT DATE: 20220223
